FAERS Safety Report 9716554 (Version 1)
Quarter: 2013Q4

REPORT INFORMATION
  Report Type: Spontaneous
  Country: US (occurrence: US)
  Receive Date: 20131127
  Receipt Date: 20131127
  Transmission Date: 20140711
  Serious: No
  Sender: FDA-Public Use
  Company Number: US-PFIZER INC-2013334755

PATIENT
  Age: 38 Year
  Sex: Female
  Weight: 58.05 kg

DRUGS (2)
  1. ADVIL [Suspect]
     Indication: HEADACHE
     Dosage: 400 MG (REPORTED AS TWO TABLETS OF 200 MG), AS NEEDED
     Route: 048
  2. ADVIL [Suspect]
     Dosage: 400 MG (TWO TABLETS OF 200 MG), 2X/DAY
     Route: 048
     Dates: start: 20131119

REACTIONS (3)
  - Expired drug administered [Unknown]
  - Drug ineffective [Unknown]
  - Blood cholesterol increased [Unknown]
